FAERS Safety Report 4323307-5 (Version None)
Quarter: 2004Q1

REPORT INFORMATION
  Report Type: 
  Country: None (occurrence: None)
  Receive Date: 20040323
  Receipt Date: 20031201
  Transmission Date: 20041129
  Serious: No
  Sender: FDA-Public Use
  Company Number: M03-341-174

PATIENT
  Age: 70 Year
  Sex: Female
  Weight: 58 kg

DRUGS (4)
  1. VELCADE [Suspect]
     Indication: MULTIPLE MYELOMA
     Dosage: 2 MG: INTRAVENOUS BOLUS
     Route: 040
     Dates: start: 20031027, end: 20031125
  2. DECADRON [Concomitant]
  3. LEVOXYL [Concomitant]
  4. MULTI-VITAMINS [Concomitant]

REACTIONS (1)
  - VISION BLURRED [None]
